FAERS Safety Report 7546286-6 (Version None)
Quarter: 2011Q2

REPORT INFORMATION
  Report Type: 
  Country: None (occurrence: None)
  Receive Date: 20110614
  Receipt Date: 20040324
  Transmission Date: 20111010
  Serious: Yes (Other)
  Sender: FDA-Public Use
  Company Number: PHFR2004GB01404

PATIENT
  Sex: Male

DRUGS (1)
  1. CLOZAPINE [Suspect]
     Indication: SCHIZOPHRENIA
     Route: 048
     Dates: start: 20040209

REACTIONS (10)
  - PERICARDIAL EFFUSION [None]
  - VOMITING [None]
  - EOSINOPHIL COUNT INCREASED [None]
  - MALAISE [None]
  - CONVULSION [None]
  - PYREXIA [None]
  - VIRAL PERICARDITIS [None]
  - BODY TEMPERATURE INCREASED [None]
  - WHITE BLOOD CELL COUNT INCREASED [None]
  - ILL-DEFINED DISORDER [None]
